FAERS Safety Report 6713551-1 (Version None)
Quarter: 2010Q2

REPORT INFORMATION
  Report Type: 
  Country: None (occurrence: None)
  Receive Date: 20100503
  Receipt Date: 20100419
  Transmission Date: 20101027
  Serious: Yes (Death, Hospitalization)
  Sender: FDA-Public Use
  Company Number: 7002392

PATIENT
  Age: 44 Year
  Sex: Male

DRUGS (3)
  1. REBIF [Suspect]
     Indication: RELAPSING-REMITTING MULTIPLE SCLEROSIS
     Dosage: SUBCUTANEOUS; 44 MCG, 3 IN 1 WK
     Route: 058
     Dates: start: 20061205
  2. REBIF [Suspect]
     Indication: RELAPSING-REMITTING MULTIPLE SCLEROSIS
     Dosage: SUBCUTANEOUS; 44 MCG, 3 IN 1 WK
     Route: 058
     Dates: start: 20080101
  3. PROVIGIL [Concomitant]

REACTIONS (6)
  - AMPUTATION [None]
  - CORONARY ARTERY BYPASS [None]
  - HAEMORRHAGIC STROKE [None]
  - JAW DISORDER [None]
  - JAW OPERATION [None]
  - MASS [None]
